FAERS Safety Report 21239610 (Version 1)
Quarter: 2022Q3

REPORT INFORMATION
  Report Type: Spontaneous
  Country: US (occurrence: None)
  Receive Date: 20220820
  Receipt Date: 20220820
  Transmission Date: 20221027
  Serious: Yes (Other)
  Sender: FDA-Public Use
  Company Number: None

PATIENT
  Age: 44 Year
  Sex: Female
  Weight: 49.5 kg

DRUGS (8)
  1. VENLAFAXINE [Suspect]
     Active Substance: VENLAFAXINE HYDROCHLORIDE
     Indication: Fibromyalgia
     Dates: start: 20201216, end: 20210430
  2. MIDODRINE [Concomitant]
     Active Substance: MIDODRINE
  3. SUCRALFATE [Concomitant]
     Active Substance: SUCRALFATE
  4. MELOXICAM [Concomitant]
     Active Substance: MELOXICAM
  5. OMEGA [Concomitant]
  6. VITAMIN D [Concomitant]
     Active Substance: VITAMIN D NOS
  7. VITAMIN B12 [Concomitant]
     Active Substance: CYANOCOBALAMIN
  8. MAGNESIUM [Concomitant]

REACTIONS (1)
  - Partial seizures [None]

NARRATIVE: CASE EVENT DATE: 20210317
